FAERS Safety Report 6917593-2 (Version None)
Quarter: 2010Q3

REPORT INFORMATION
  Report Type: 
  Country: None (occurrence: None)
  Receive Date: 20100805
  Receipt Date: 20100719
  Transmission Date: 20110219
  Serious: Yes (Death)
  Sender: FDA-Public Use
  Company Number: APP201000605

PATIENT
  Age: 81 Year
  Sex: Male

DRUGS (1)
  1. PAMIDRONATE DISODIUM [Suspect]
     Indication: PRODUCT USED FOR UNKNOWN INDICATION

REACTIONS (1)
  - OSTEONECROSIS OF JAW [None]
